FAERS Safety Report 19862877 (Version 1)
Quarter: 2021Q3

REPORT INFORMATION
  Report Type: Spontaneous
  Country: FI (occurrence: FI)
  Receive Date: 20210921
  Receipt Date: 20210921
  Transmission Date: 20211014
  Serious: Yes (Hospitalization)
  Sender: FDA-Public Use
  Company Number: FI-ELI_LILLY_AND_COMPANY-FI202109006021

PATIENT
  Age: 71 Year
  Sex: Female

DRUGS (4)
  1. METFORMIN HYDROCHLORIDE. [Concomitant]
     Active Substance: METFORMIN HYDROCHLORIDE
     Indication: TYPE 2 DIABETES MELLITUS
     Dosage: 500 MG, DAILY
     Route: 048
     Dates: start: 20210419
  2. ZYPADHERA [Suspect]
     Active Substance: OLANZAPINE PAMOATE
     Indication: BIPOLAR DISORDER
     Dosage: 600 MG, MONTHLY (1/M)
     Route: 030
     Dates: start: 20140422
  3. ZYPADHERA [Suspect]
     Active Substance: OLANZAPINE PAMOATE
     Indication: BIPOLAR DISORDER
     Dosage: 600 MG, MONTHLY (1/M)
     Route: 030
     Dates: start: 20140422
  4. ZYPADHERA [Suspect]
     Active Substance: OLANZAPINE PAMOATE
     Indication: BIPOLAR DISORDER
     Dosage: 600 MG, MONTHLY (1/M)
     Route: 030
     Dates: start: 20140422

REACTIONS (18)
  - Dizziness [Recovered/Resolved]
  - Joint stiffness [Recovered/Resolved]
  - Dysarthria [Recovered/Resolved]
  - Depressed level of consciousness [Recovered/Resolved]
  - Slow response to stimuli [Recovered/Resolved]
  - Muscular weakness [Recovered/Resolved]
  - C-reactive protein increased [Recovered/Resolved]
  - Musculoskeletal stiffness [Recovered/Resolved]
  - Muscle rigidity [Recovered/Resolved]
  - Akathisia [Recovered/Resolved]
  - White blood cell count increased [Recovered/Resolved]
  - Oxygen saturation decreased [Recovered/Resolved]
  - Neuroleptic malignant syndrome [Recovered/Resolved]
  - Fatigue [Recovered/Resolved]
  - Paraesthesia [Recovered/Resolved]
  - Cough [Recovered/Resolved]
  - Blood pressure systolic increased [Recovered/Resolved]
  - Pyrexia [Recovered/Resolved]

NARRATIVE: CASE EVENT DATE: 20210809
